FAERS Safety Report 12980489 (Version 1)
Quarter: 2016Q4

REPORT INFORMATION
  Report Type: Spontaneous
  Country: CA (occurrence: CA)
  Receive Date: 20161128
  Receipt Date: 20161128
  Transmission Date: 20170207
  Serious: Yes (Other)
  Sender: FDA-Public Use
  Company Number: CA-ALLERGAN-1678009US

PATIENT
  Age: 52 Year
  Sex: Female

DRUGS (4)
  1. METHOTREXATE. [Concomitant]
     Active Substance: METHOTREXATE
     Indication: RHEUMATOID ARTHRITIS
     Dosage: UNK
     Dates: end: 201611
  2. MONUROL [Suspect]
     Active Substance: FOSFOMYCIN TROMETHAMINE
     Indication: CYSTITIS
  3. XELJANZ [Concomitant]
     Active Substance: TOFACITINIB CITRATE
     Indication: RHEUMATOID ARTHRITIS
     Dosage: 5 MG, BID
     Route: 048
     Dates: start: 20160113, end: 20160823
  4. GABAPENTIN. [Concomitant]
     Active Substance: GABAPENTIN
     Indication: FIBROMYALGIA
     Dosage: UNK UNK, TID
     Dates: start: 20160509

REACTIONS (3)
  - Kidney infection [Unknown]
  - Incorrect drug administration duration [Unknown]
  - Drug ineffective [Unknown]
